FAERS Safety Report 21331917 (Version 3)
Quarter: 2023Q1

REPORT INFORMATION
  Report Type: Report from Study
  Country: KR (occurrence: None)
  Receive Date: 20220914
  Receipt Date: 20230105
  Transmission Date: 20230417
  Serious: Yes (Hospitalization)
  Sender: FDA-Public Use
  Company Number: KR-ROCHE-3177039

PATIENT
  Age: 57 Year
  Sex: Female

DRUGS (10)
  1. ATEZOLIZUMAB [Suspect]
     Active Substance: ATEZOLIZUMAB
     Indication: Triple negative breast cancer
     Dosage: DATE OF LAST DOSE PRIOR TO ADVERSE EVENT ON 02/SEP/2022
     Route: 041
     Dates: start: 20220812, end: 20220907
  2. ATEZOLIZUMAB [Suspect]
     Active Substance: ATEZOLIZUMAB
     Route: 041
     Dates: start: 20221104
  3. CAPECITABINE [Suspect]
     Active Substance: CAPECITABINE
     Indication: Triple negative breast cancer
     Route: 048
     Dates: start: 20220812
  4. TRAMADOL HYDROCHLORIDE [Concomitant]
     Active Substance: TRAMADOL HYDROCHLORIDE
     Dates: start: 20221222, end: 20221222
  5. LIVERACT [Concomitant]
     Dosage: INFUSION
     Dates: start: 20221222, end: 20221223
  6. CEFTRIAXONE [Concomitant]
     Active Substance: CEFTRIAXONE
     Dates: start: 20221222, end: 20221223
  7. METRYNAL [Concomitant]
     Dates: start: 20221222, end: 20221222
  8. PACETA [Concomitant]
     Dates: start: 20221222, end: 20221223
  9. TYRENOL [Concomitant]
     Dates: start: 20221223, end: 20221224
  10. CIPROFLOXACIN [Concomitant]
     Active Substance: CIPROFLOXACIN
     Dates: start: 20221224, end: 20221224

REACTIONS (2)
  - Embolism [Recovered/Resolved]
  - Cholecystitis acute [Recovered/Resolved]

NARRATIVE: CASE EVENT DATE: 20220905
